FAERS Safety Report 20129222 (Version 1)
Quarter: 2021Q4

REPORT INFORMATION
  Report Type: Spontaneous
  Country: US (occurrence: US)
  Receive Date: 20211130
  Receipt Date: 20211130
  Transmission Date: 20220303
  Serious: Yes (Hospitalization, Other)
  Sender: FDA-Public Use
  Company Number: US-drreddys-SPO/USA/21/0144111

PATIENT
  Age: 29 Year
  Sex: Female

DRUGS (8)
  1. OLANZAPINE [Suspect]
     Active Substance: OLANZAPINE
     Indication: Psychotic disorder
  2. OLANZAPINE [Suspect]
     Active Substance: OLANZAPINE
     Indication: Mania
  3. OLANZAPINE [Suspect]
     Active Substance: OLANZAPINE
  4. OLANZAPINE [Suspect]
     Active Substance: OLANZAPINE
     Dosage: OLANZAPINE WAS DECREASED
  5. RISPERIDONE [Concomitant]
     Active Substance: RISPERIDONE
     Indication: Psychotic disorder
  6. RISPERIDONE [Concomitant]
     Active Substance: RISPERIDONE
     Indication: Mania
  7. LITHIUM [Concomitant]
     Active Substance: LITHIUM
     Indication: Psychotic disorder
  8. LITHIUM [Concomitant]
     Active Substance: LITHIUM
     Indication: Mania

REACTIONS (2)
  - Aggression [Recovered/Resolved]
  - Agitation [Recovered/Resolved]
